FAERS Safety Report 9197629 (Version 1)
Quarter: 2013Q1

REPORT INFORMATION
  Report Type: Spontaneous
  Country: DE (occurrence: DE)
  Receive Date: 20130328
  Receipt Date: 20130328
  Transmission Date: 20140127
  Serious: Yes (Death, Other)
  Sender: FDA-Public Use
  Company Number: DE-ROCHE-1083724

PATIENT
  Age: 79 Year
  Sex: Male
  Weight: 82 kg

DRUGS (3)
  1. ZELBORAF [Suspect]
     Indication: METASTATIC MALIGNANT MELANOMA
     Route: 048
     Dates: start: 20120503, end: 20120513
  2. ZELBORAF [Suspect]
     Route: 048
     Dates: start: 20120514
  3. ZELBORAF [Suspect]
     Route: 048
     Dates: end: 20120921

REACTIONS (4)
  - Neoplasm malignant [Fatal]
  - Electrocardiogram QT prolonged [Recovered/Resolved]
  - Rash generalised [Recovering/Resolving]
  - Dysgeusia [Recovered/Resolved]
